FAERS Safety Report 12727469 (Version 1)
Quarter: 2016Q3

REPORT INFORMATION
  Report Type: Spontaneous
  Country: US (occurrence: US)
  Receive Date: 20160909
  Receipt Date: 20160909
  Transmission Date: 20161109
  Serious: Yes (Other)
  Sender: FDA-Public Use
  Company Number: US-TEVA-691183ACC

PATIENT
  Sex: Female
  Weight: 50.85 kg

DRUGS (1)
  1. PARAGARD T 380A [Suspect]
     Active Substance: COPPER
     Indication: CONTRACEPTION
     Dates: end: 20160831

REACTIONS (12)
  - Vaginal haemorrhage [Unknown]
  - Amenorrhoea [Unknown]
  - Device dislocation [Recovered/Resolved]
  - Decreased appetite [Unknown]
  - Premenstrual syndrome [Unknown]
  - Insomnia [Unknown]
  - Anxiety [Unknown]
  - Irritability [Unknown]
  - Uterine haemorrhage [Unknown]
  - Acne [Unknown]
  - Flatulence [Unknown]
  - Abdominal distension [Unknown]
